FAERS Safety Report 21125561 (Version 2)
Quarter: 2022Q3

REPORT INFORMATION
  Report Type: Report from Study
  Country: ES (occurrence: ES)
  Receive Date: 20220725
  Receipt Date: 20220811
  Transmission Date: 20221027
  Serious: Yes (Hospitalization)
  Sender: FDA-Public Use
  Company Number: ES-PFIZER INC-PV202200022593

PATIENT
  Age: 62 Year
  Sex: Male
  Weight: 66 kg

DRUGS (5)
  1. AVASTIN [Suspect]
     Active Substance: BEVACIZUMAB
     Indication: Colorectal cancer metastatic
     Dosage: 330 MG, CYCLIC, AVASTIN
     Route: 042
     Dates: start: 20220331, end: 20220622
  2. FLUOROURACIL [Suspect]
     Active Substance: FLUOROURACIL
     Indication: Colorectal cancer metastatic
     Dosage: 4308 MG, EVERY 2 WEEK
     Route: 040
     Dates: start: 20220331, end: 20220622
  3. FLUOROURACIL [Suspect]
     Active Substance: FLUOROURACIL
     Dosage: 718 MG, EVERY 2 WEEK (INTRAVENOUS INFUSION)
     Route: 042
     Dates: start: 20220331, end: 20220622
  4. LEUCOVORIN [Suspect]
     Active Substance: LEUCOVORIN
     Indication: Colorectal cancer metastatic
     Dosage: 718 MG, EVERY 2 WEEKS
     Route: 042
     Dates: start: 20220331, end: 20220622
  5. OXALIPLATIN [Suspect]
     Active Substance: OXALIPLATIN
     Indication: Colorectal cancer metastatic
     Dosage: 152.58 MG, EVERY 2 WEEKS
     Route: 042
     Dates: start: 20220331, end: 20220622

REACTIONS (1)
  - Colitis [Recovered/Resolved]

NARRATIVE: CASE EVENT DATE: 20220713
